FAERS Safety Report 9512139 (Version 1)
Quarter: 2013Q1

REPORT INFORMATION
  Report Type: Spontaneous
  Country: US (occurrence: None)
  Receive Date: 20130305
  Receipt Date: 20130305
  Transmission Date: 20140127
  Serious: Yes (Other)
  Sender: FDA-Public Use
  Company Number: 163-21880-12050541

PATIENT
  Age: 46 Year
  Sex: Male
  Weight: 98.4 kg

DRUGS (16)
  1. REVLIMID [Suspect]
     Indication: PLASMA CELL MYELOMA
     Dosage: 5 MG, QD X21 DAYS, PO
     Route: 048
     Dates: start: 20110101, end: 201203
  2. CELEXA (CITALOPRAM HYDROBROMIDE) (UNKNOWN)? [Concomitant]
  3. CLONAZEPAM (CLONAZEPAM) (UNKNOWN) [Concomitant]
  4. DEXAMETHASONE (DEXAMETHASONE ) (UNKNOWN) [Concomitant]
  5. EMLA (EMLA) (UNKNOWN) [Concomitant]
  6. FLONASE (FLUTICASONE PROPIONATE) (UNKNOWN) [Concomitant]
  7. HYDROMORPHONE (HYDROMORPHONE) (UNKNOWN) (HYDROMORPHONE) [Concomitant]
  8. LACTULOSE (LACTULOSE) (UNKNOWN) [Concomitant]
  9. MARINOL (DRONABINOL) (UNKNOWN) [Concomitant]
  10. PROCRIT [Concomitant]
  11. NATEGLINIDE (NATEGLINIDE) (UNKNOWN) [Concomitant]
  12. NEXIUM (ESOMEPRAZOLE) (UNKNOWN) [Concomitant]
  13. RENVELA (SEVELAMBER CARBONATE) (UNKNOWN) [Concomitant]
  14. SENSIPAR (CINACALCET HYDROCHLORIDE) (UNKNOWN) [Concomitant]
  15. WARFARIN (WARFARIN) (UNKNOWN) [Concomitant]
  16. ZOLOFT (SEERTRALINE HYDROCHLORIDE) (UNKNOWN) [Concomitant]

REACTIONS (1)
  - Haemoglobin decreased [None]
